FAERS Safety Report 18090222 (Version 2)
Quarter: 2020Q3

REPORT INFORMATION
  Report Type: Report from Study
  Country: BR (occurrence: BR)
  Receive Date: 20200729
  Receipt Date: 20200810
  Transmission Date: 20201103
  Serious: Yes (Other)
  Sender: FDA-Public Use
  Company Number: NVSC2020BR209543

PATIENT
  Sex: Male
  Weight: 90 kg

DRUGS (3)
  1. ENTRESTO [Suspect]
     Active Substance: SACUBITRIL\VALSARTAN
     Indication: CARDIAC FAILURE
     Dosage: 51 MG VALSARTAN AND 49 MG SACUBITRIL
     Route: 065
     Dates: start: 2019
  2. SPIRONOLACTONE. [Concomitant]
     Active Substance: SPIRONOLACTONE
     Indication: PRODUCT USED FOR UNKNOWN INDICATION
     Dosage: UNK
     Route: 065
  3. CARVEDILOL. [Suspect]
     Active Substance: CARVEDILOL
     Indication: PRODUCT USED FOR UNKNOWN INDICATION
     Dosage: BID (MAXIMUM DOSE)
     Route: 065

REACTIONS (4)
  - Erectile dysfunction [Not Recovered/Not Resolved]
  - Cardiomegaly [Unknown]
  - Asthenia [Unknown]
  - Fatigue [Not Recovered/Not Resolved]
